FAERS Safety Report 8761534 (Version 1)
Quarter: 2012Q4

REPORT INFORMATION
  Report Type: 
  Country: CO (occurrence: CO)
  Receive Date: 20120829
  Receipt Date: 20120829
  Transmission Date: 20130627
  Serious: Yes (Other)
  Sender: FDA-Public Use
  Company Number: CO-AMGEN-COLSP2012054356

PATIENT
  Age: 62 Year
  Sex: Female

DRUGS (4)
  1. ENBREL [Suspect]
     Indication: RHEUMATOID ARTHRITIS
     Dosage: weekly
     Route: 058
     Dates: start: 2004
  2. CALCIUM [Concomitant]
     Dosage: daily
     Route: 048
  3. HYDROCHLOROTHIAZIDE [Concomitant]
     Dosage: daily
     Route: 048
  4. BETALOC [Concomitant]
     Dosage: 1 tablet at morning 1 tablet at night
     Route: 048

REACTIONS (2)
  - Cerebral infarction [Unknown]
  - Blood pressure [Unknown]
